FAERS Safety Report 9858324 (Version 1)
Quarter: 2014Q1

REPORT INFORMATION
  Report Type: Spontaneous
  Country: FR (occurrence: None)
  Receive Date: 20140129
  Receipt Date: 20140129
  Transmission Date: 20141002
  Serious: Yes (Hospitalization)
  Sender: FDA-Public Use
  Company Number: NGX_02210_2014

PATIENT
  Age: 48 Year
  Sex: Female

DRUGS (6)
  1. QUTENZA [Suspect]
     Indication: NEUROPATHY PERIPHERAL
     Dosage: ( 2 DF [PATCHES] TOPICAL), ([PATCHES, LESS THAN 1 HOUR OF APPLICATION, DF] TOPICAL), ([PATCHES, LESS THAN 1 HOUR OF APPLICATION, DF] TOPICAL), ([PATCHES, LESS THAN 1 HOUR OF APPLICATION, DF] TOPICAL), ([PATCHES, DF] TOPICAL)
     Route: 061
  2. QUTENZA [Suspect]
     Indication: OFF LABEL USE
     Dosage: ( 2 DF [PATCHES] TOPICAL), ([PATCHES, LESS THAN 1 HOUR OF APPLICATION, DF] TOPICAL), ([PATCHES, LESS THAN 1 HOUR OF APPLICATION, DF] TOPICAL), ([PATCHES, LESS THAN 1 HOUR OF APPLICATION, DF] TOPICAL), ([PATCHES, DF] TOPICAL)
     Route: 061
  3. OXYCONTIN [Concomitant]
  4. TOPALGIC /00599202/ [Concomitant]
  5. TRILEPTAL [Concomitant]
  6. ACUPAN [Concomitant]

REACTIONS (8)
  - Application site pain [None]
  - Burning sensation [None]
  - Neuralgia [None]
  - Asthenia [None]
  - Malaise [None]
  - Headache [None]
  - Myalgia [None]
  - Face oedema [None]
